FAERS Safety Report 7779216-2 (Version None)
Quarter: 2011Q3

REPORT INFORMATION
  Report Type: 
  Country: None (occurrence: None)
  Receive Date: 20110926
  Receipt Date: 20110916
  Transmission Date: 20111222
  Serious: Yes (Hospitalization, Other)
  Sender: FDA-Public Use
  Company Number: US-AMGEN-USASP2011047856

PATIENT
  Sex: Female

DRUGS (3)
  1. ENBREL [Suspect]
     Indication: RHEUMATOID ARTHRITIS
     Dosage: 50 MG, QWK
     Dates: start: 20110831
  2. ENBREL [Suspect]
     Indication: POLYARTHRITIS
  3. ENBREL [Suspect]
     Indication: BEHCET'S SYNDROME

REACTIONS (11)
  - AMNESIA [None]
  - DIZZINESS [None]
  - TREMOR [None]
  - HYPERHIDROSIS [None]
  - HOSPITALISATION [None]
  - DECREASED APPETITE [None]
  - INJECTION SITE PAIN [None]
  - FULL BLOOD COUNT DECREASED [None]
  - CHILLS [None]
  - ASTHENIA [None]
  - FATIGUE [None]
